FAERS Safety Report 9546932 (Version 1)
Quarter: 2013Q3

REPORT INFORMATION
  Report Type: Spontaneous
  Country: US (occurrence: None)
  Receive Date: 20130920
  Receipt Date: 20130920
  Transmission Date: 20140515
  Serious: Yes (Death)
  Sender: FDA-Public Use
  Company Number: SYM-2013-10750

PATIENT
  Age: 46 Year
  Sex: Female

DRUGS (1)
  1. XENAZINE [Suspect]
     Route: 048
     Dates: start: 20121211, end: 20130826

REACTIONS (1)
  - Death [None]
